FAERS Safety Report 6447864-8 (Version None)
Quarter: 2009Q4

REPORT INFORMATION
  Report Type: 
  Country: None (occurrence: None)
  Receive Date: 20091120
  Receipt Date: 20091109
  Transmission Date: 20100525
  Serious: Yes (Other)
  Sender: FDA-Public Use
  Company Number: GB-PFIZER INC-2009295378

PATIENT

DRUGS (1)
  1. VFEND [Suspect]

REACTIONS (2)
  - GUILLAIN-BARRE SYNDROME [None]
  - METABOLIC ACIDOSIS [None]
